FAERS Safety Report 19085071 (Version 2)
Quarter: 2021Q2

REPORT INFORMATION
  Report Type: Spontaneous
  Country: FR (occurrence: FR)
  Receive Date: 20210401
  Receipt Date: 20210407
  Transmission Date: 20210717
  Serious: Yes (Death, Other)
  Sender: FDA-Public Use
  Company Number: FR-BRACCO-2021FR00954

PATIENT
  Age: 47 Year
  Sex: Male

DRUGS (1)
  1. PROHANCE [Suspect]
     Active Substance: GADOTERIDOL
     Indication: MAGNETIC RESONANCE IMAGING HEAD
     Dosage: 15 ML, SINGLE, SLOW INTRAVENOUS INJECTION
     Route: 042
     Dates: start: 20210304, end: 20210304

REACTIONS (3)
  - Multiple organ dysfunction syndrome [Fatal]
  - Anaphylactic shock [Fatal]
  - Cardiac arrest [Fatal]

NARRATIVE: CASE EVENT DATE: 20210304
